FAERS Safety Report 10729041 (Version 3)
Quarter: 2015Q2

REPORT INFORMATION
  Report Type: Spontaneous
  Country: US (occurrence: US)
  Receive Date: 20150122
  Receipt Date: 20150505
  Transmission Date: 20150821
  Serious: Yes (Hospitalization)
  Sender: FDA-Public Use
  Company Number: US-PFIZER INC-2015024540

PATIENT
  Age: 53 Year
  Sex: Male

DRUGS (2)
  1. SUTENT [Suspect]
     Active Substance: SUNITINIB MALATE
     Dosage: 50 MG, CYCLIC (DAILY 4 WK. ON 2 OFF)
     Route: 048
     Dates: start: 20150119
  2. SUTENT [Suspect]
     Active Substance: SUNITINIB MALATE
     Indication: RENAL CANCER METASTATIC
     Dosage: 50 MG, DAILY
     Route: 048

REACTIONS (4)
  - Nausea [Unknown]
  - Jaw disorder [Unknown]
  - Urticaria [Unknown]
  - Somnolence [Unknown]

NARRATIVE: CASE EVENT DATE: 20150116
